FAERS Safety Report 8882838 (Version 1)
Quarter: 2012Q4

REPORT INFORMATION
  Report Type: 
  Country: US (occurrence: US)
  Receive Date: 20121102
  Receipt Date: 20121102
  Transmission Date: 20130627
  Serious: No
  Sender: FDA-Public Use
  Company Number: US-ASTRAZENECA-2011SE69794

PATIENT
  Sex: Female

DRUGS (4)
  1. CRESTOR [Suspect]
     Indication: BLOOD CHOLESTEROL ABNORMAL
     Route: 048
     Dates: start: 20110801, end: 20110831
  2. OTC ESTROGEN [Concomitant]
  3. OTC FISHOIL [Concomitant]
  4. OTC VITAMIN C [Concomitant]

REACTIONS (4)
  - Oropharyngeal pain [Unknown]
  - Malaise [Unknown]
  - Pharyngitis [Unknown]
  - Cough [Unknown]
